FAERS Safety Report 5309339-9 (Version None)
Quarter: 2007Q2

REPORT INFORMATION
  Report Type: 
  Country: None (occurrence: None)
  Receive Date: 20070427
  Receipt Date: 20070416
  Transmission Date: 20071010
  Serious: Yes (Hospitalization, Other)
  Sender: FDA-Public Use
  Company Number: HQWYE755818SEP03

PATIENT
  Sex: Male
  Weight: 69.01 kg

DRUGS (12)
  1. PROTONIX [Suspect]
     Route: 048
  2. TOPROL-XL [Suspect]
     Indication: HYPERTENSION
     Route: 048
  3. ZETIA [Suspect]
     Indication: HYPERCHOLESTEROLAEMIA
     Route: 048
  4. FLUOROURACIL [Suspect]
     Indication: COLORECTAL CANCER METASTATIC
     Dosage: 500 MG/M*2, DAY 1 AND 8 CYCLE
     Route: 042
     Dates: start: 20030811, end: 20030811
  5. FLUOROURACIL [Suspect]
     Dosage: 500 MG/M*2, DAY 1 AND 8 CYCLE
     Route: 042
     Dates: start: 20030818, end: 20030818
  6. ACETYLSALICYLIC ACID SRT [Suspect]
     Indication: PROPHYLAXIS
     Route: 048
     Dates: start: 19860101, end: 20030810
  7. AMIODARONE HCL [Suspect]
     Route: 048
  8. LEUCOVORIN CALCIUM [Suspect]
     Indication: COLORECTAL CANCER METASTATIC
     Dosage: ^(20 MG/M*2, CYCLE 1, DAY 1 AND^
     Route: 065
     Dates: start: 20030811, end: 20030818
  9. IRINOTECAN HCL [Suspect]
     Indication: COLORECTAL CANCER METASTATIC
     Dosage: 125 MG/M*2, DAY 1 AND 8, CYCLE
     Route: 042
     Dates: start: 20030811, end: 20030811
  10. IRINOTECAN HCL [Suspect]
     Dosage: 125 MG/M*2, DAY 1 AND 8, CYCLE
     Dates: start: 20030818, end: 20030818
  11. XANAX [Suspect]
     Indication: SLEEP DISORDER
     Route: 048
  12. CIPRO [Suspect]
     Indication: PROPHYLAXIS
     Route: 065

REACTIONS (10)
  - ANGINA PECTORIS [None]
  - BLOOD CHLORIDE DECREASED [None]
  - BLOOD SODIUM DECREASED [None]
  - CONSTIPATION [None]
  - HAEMATOCRIT DECREASED [None]
  - HAEMOGLOBIN DECREASED [None]
  - INTESTINAL OBSTRUCTION [None]
  - PLATELET COUNT INCREASED [None]
  - RED BLOOD CELL COUNT DECREASED [None]
  - WHITE BLOOD CELL COUNT INCREASED [None]
